FAERS Safety Report 5767237-0 (Version None)
Quarter: 2008Q2

REPORT INFORMATION
  Report Type: 
  Country: None (occurrence: None)
  Receive Date: 20080612
  Receipt Date: 20080605
  Transmission Date: 20081010
  Serious: Yes (Other)
  Sender: FDA-Public Use
  Company Number: PR-BAYER-200814955NA

PATIENT
  Age: 45 Year
  Sex: Male

DRUGS (3)
  1. AVELOX [Suspect]
     Indication: BRONCHITIS
     Route: 048
     Dates: start: 20080222
  2. CARDURA [Concomitant]
     Dosage: TOTAL DAILY DOSE: 4 MG
     Route: 048
  3. DIOVAN [Concomitant]
     Dosage: TOTAL DAILY DOSE: 160 MG
     Route: 048

REACTIONS (2)
  - HYPERSENSITIVITY [None]
  - RASH [None]
